FAERS Safety Report 5233370-5 (Version None)
Quarter: 2007Q1

REPORT INFORMATION
  Report Type: 
  Country: None (occurrence: None)
  Receive Date: 20070207
  Receipt Date: 20070207
  Transmission Date: 20070707
  Serious: Yes (Other)
  Sender: FDA-Public Use
  Company Number: None

PATIENT
  Age: 55 Year
  Sex: Female
  Weight: 50.8029 kg

DRUGS (1)
  1. FORADIL [Suspect]
     Indication: LUNG DISORDER
     Dosage: USE ONE INHALATION TWICE A DAY
     Route: 055
     Dates: start: 20061012, end: 20070124

REACTIONS (2)
  - DYSPNOEA [None]
  - PHARMACEUTICAL PRODUCT COMPLAINT [None]
